FAERS Safety Report 11822375 (Version 1)
Quarter: 2015Q4

REPORT INFORMATION
  Report Type: Spontaneous
  Country: US (occurrence: US)
  Receive Date: 20151210
  Receipt Date: 20151210
  Transmission Date: 20160305
  Serious: No
  Sender: FDA-Public Use
  Company Number: US-JNJFOC-20140716508

PATIENT
  Age: 73 Year
  Sex: Female
  Weight: 54 kg

DRUGS (14)
  1. IMBRUVICA [Suspect]
     Active Substance: IBRUTINIB
     Indication: CHRONIC LYMPHOCYTIC LEUKAEMIA
     Route: 065
     Dates: start: 201407
  2. NASONEX [Concomitant]
     Active Substance: MOMETASONE FUROATE
  3. CALCIUM [Concomitant]
     Active Substance: CALCIUM
  4. MONTELUKAST [Concomitant]
     Active Substance: MONTELUKAST SODIUM
  5. MUPIROCIN. [Concomitant]
     Active Substance: MUPIROCIN
  6. IMBRUVICA [Suspect]
     Active Substance: IBRUTINIB
     Indication: CHRONIC LYMPHOCYTIC LEUKAEMIA
     Route: 065
  7. IMBRUVICA [Suspect]
     Active Substance: IBRUTINIB
     Indication: CHRONIC LYMPHOCYTIC LEUKAEMIA
     Route: 065
     Dates: start: 20140530
  8. IMBRUVICA [Suspect]
     Active Substance: IBRUTINIB
     Indication: CHRONIC LYMPHOCYTIC LEUKAEMIA
     Route: 065
  9. MULTIVITAMINS [Concomitant]
     Active Substance: VITAMINS
  10. ACYCLOVIR. [Concomitant]
     Active Substance: ACYCLOVIR
  11. CLONAZEPAM. [Concomitant]
     Active Substance: CLONAZEPAM
  12. ALLOPURINOL. [Concomitant]
     Active Substance: ALLOPURINOL
  13. LEVOTHYROXINE. [Concomitant]
     Active Substance: LEVOTHYROXINE
  14. CETIRIZINE [Concomitant]
     Active Substance: CETIRIZINE HYDROCHLORIDE

REACTIONS (5)
  - Contusion [Recovering/Resolving]
  - Gout [Unknown]
  - Blood count abnormal [Unknown]
  - Haematuria [Unknown]
  - Cystitis [Not Recovered/Not Resolved]

NARRATIVE: CASE EVENT DATE: 201407
